FAERS Safety Report 9312072 (Version 2)
Quarter: 2013Q1

REPORT INFORMATION
  Report Type: Spontaneous
  Country: US (occurrence: None)
  Receive Date: 20130128
  Receipt Date: 20130219
  Transmission Date: 20140127
  Serious: Yes (Death)
  Sender: FDA-Public Use
  Company Number: THQ2013A00261

PATIENT
  Age: 64 Year
  Sex: Female

DRUGS (19)
  1. LAMOTRIGINE [Suspect]
     Route: 048
  2. HYDROCHLOROTHIAZIDE [Suspect]
     Route: 048
  3. ARMODAFINIL [Suspect]
     Route: 048
  4. POTASSIUM CHLORIDE [Suspect]
     Route: 048
  5. TRIFLUOPERAZINE [Suspect]
     Route: 048
  6. ESCITALOPRAM [Suspect]
     Route: 048
  7. NAPROXEN [Suspect]
     Route: 048
  8. NITROFURANTOIN [Suspect]
     Route: 048
  9. ACETAMINOPHEN/HYDROCODONE (PARACETAMOL, HYDROCODONE) [Suspect]
     Route: 048
  10. ACETAMINOPHEN/PROPOXYPHENE (PARACETAMOL, DEXTROPROPOXYPHENE) [Suspect]
     Route: 048
  11. SOLIFENACIN [Suspect]
     Route: 048
  12. PROGESTIN (PROGESTERONE) [Suspect]
     Route: 048
  13. LANSOPRAZOLE (LANSOPRAZOLE) [Suspect]
     Route: 048
  14. DILTIAZEM HCL (DILTIAZEM HYDROCHLORIDE) [Suspect]
     Route: 048
  15. VENLAFAXINE HCL (VENLAFAXINE HYDROCHLORIDE) [Suspect]
     Route: 048
  16. PANTOPRAZOLE [Suspect]
     Route: 048
  17. DICLOFENAC EPOLAMINE [Suspect]
     Route: 048
  18. CIPROFLOXACIN [Suspect]
  19. DESIPRAMINE [Suspect]
     Route: 048

REACTIONS (1)
  - Completed suicide [None]
